FAERS Safety Report 15522044 (Version 1)
Quarter: 2018Q4

REPORT INFORMATION
  Report Type: Spontaneous
  Country: US (occurrence: US)
  Receive Date: 20181018
  Receipt Date: 20181018
  Transmission Date: 20190205
  Serious: Yes (Life-Threatening, Disabling, Other)
  Sender: FDA-Public Use
  Company Number: None

PATIENT
  Age: 54 Year
  Sex: Male
  Weight: 117.9 kg

DRUGS (19)
  1. FLUTICASONE PROPIONATE NASAL SPRAY [Concomitant]
     Active Substance: FLUTICASONE PROPIONATE
  2. PREDNISONE 20MG TABS [Suspect]
     Active Substance: PREDNISONE
     Indication: PAIN IN EXTREMITY
     Dosage: ?          QUANTITY:10 TABLET(S);?
     Route: 048
     Dates: start: 20181012, end: 20181016
  3. LOSARTAN POTASSIUM - HCTZ [Concomitant]
  4. LORAZEPAM 0.5 MG [Concomitant]
     Active Substance: LORAZEPAM
  5. CHANTIX [Concomitant]
     Active Substance: VARENICLINE TARTRATE
  6. AZELASTINE HYDROCHLORIDE OPHTHALMIC SOLUTION [Concomitant]
  7. OMEPRAZOLE 20 MG [Concomitant]
     Active Substance: OMEPRAZOLE
  8. ONDANSETRON ORALLY DISINTEGRATING TABLETS [Concomitant]
     Active Substance: ONDANSETRON
  9. ASPIRIN 81 MG [Concomitant]
     Active Substance: ASPIRIN
  10. MAGNESIUM 250 MG [Concomitant]
  11. ATORVASTATIN CALCIUM. [Concomitant]
     Active Substance: ATORVASTATIN CALCIUM
  12. HYDROXYZINE PAMOATE 25 MG [Concomitant]
  13. TOPIRAMATE 50 MG [Concomitant]
     Active Substance: TOPIRAMATE
  14. METOPROLOL SUCCINATE. [Concomitant]
     Active Substance: METOPROLOL SUCCINATE
  15. OMEPRAZOLE 20 MG [Concomitant]
     Active Substance: OMEPRAZOLE
  16. MELOXICAM 15 MG [Concomitant]
     Active Substance: MELOXICAM
  17. TRINTELLIX [Concomitant]
     Active Substance: VORTIOXETINE HYDROBROMIDE
  18. CYCLOBENZAPRINE HCL 5MG [Concomitant]
  19. FERUSOL [Concomitant]

REACTIONS (2)
  - Suicidal ideation [None]
  - Gambling disorder [None]

NARRATIVE: CASE EVENT DATE: 20181012
